FAERS Safety Report 5850490-2 (Version None)
Quarter: 2008Q3

REPORT INFORMATION
  Report Type: 
  Country: None (occurrence: None)
  Receive Date: 20080819
  Receipt Date: 20080807
  Transmission Date: 20090109
  Serious: Yes (Other)
  Sender: FDA-Public Use
  Company Number: JP-PFIZER INC-2008066587

PATIENT
  Age: 21 Year

DRUGS (2)
  1. VFEND [Suspect]
     Indication: ASPERGILLOSIS
     Dosage: DAILY DOSE:3MG/KG
     Route: 042
     Dates: start: 20080723, end: 20080725
  2. LASIX [Concomitant]

REACTIONS (2)
  - HALLUCINATION [None]
  - RESTLESSNESS [None]
